FAERS Safety Report 4411403-3 (Version None)
Quarter: 2004Q3

REPORT INFORMATION
  Report Type: 
  Country: None (occurrence: None)
  Receive Date: 20040727
  Receipt Date: 20040716
  Transmission Date: 20050211
  Serious: Yes (Hospitalization)
  Sender: FDA-Public Use
  Company Number: 2004221725JP

PATIENT
  Age: 38 Year
  Sex: Male

DRUGS (3)
  1. XALATAN [Suspect]
     Indication: OPEN ANGLE GLAUCOMA
     Dosage: QD, OPHTHALMIC
     Route: 047
     Dates: start: 20010201, end: 20010207
  2. TIMOPTOL-XE [Concomitant]
  3. TRUSOPT [Concomitant]

REACTIONS (1)
  - INTRAOCULAR PRESSURE INCREASED [None]
